FAERS Safety Report 25919311 (Version 1)
Quarter: 2025Q4

REPORT INFORMATION
  Report Type: Spontaneous
  Country: US (occurrence: None)
  Receive Date: 20251013
  Receipt Date: 20251013
  Transmission Date: 20260118
  Serious: Yes (Hospitalization)
  Sender: FDA-CTU
  Company Number: None

PATIENT
  Age: 57 Year
  Sex: Male
  Weight: 101.25 kg

DRUGS (1)
  1. SERTRALINE [Suspect]
     Active Substance: SERTRALINE HYDROCHLORIDE
     Dosage: OTHER QUANTITY : 1 TABLET(S);?
     Route: 048

REACTIONS (8)
  - Withdrawal syndrome [None]
  - Agitation [None]
  - Panic disorder [None]
  - Fatigue [None]
  - Tremor [None]
  - Anxiety [None]
  - Insomnia [None]
  - Neurological symptom [None]

NARRATIVE: CASE EVENT DATE: 20250918
